FAERS Safety Report 6545777-4 (Version None)
Quarter: 2010Q1

REPORT INFORMATION
  Report Type: 
  Country: None (occurrence: None)
  Receive Date: 20100114
  Receipt Date: 20090930
  Transmission Date: 20100710
  Serious: No
  Sender: FDA-Public Use
  Company Number: 2009BM000246

PATIENT
  Age: 7 Year
  Sex: Female
  Weight: 20.9562 kg

DRUGS (1)
  1. KUVAN [Suspect]
     Indication: PHENYLKETONURIA
     Dosage: 400 MG;QD;PO
     Route: 048
     Dates: start: 20090827, end: 20090901

REACTIONS (7)
  - DISTURBANCE IN ATTENTION [None]
  - DYSPHAGIA [None]
  - MEMORY IMPAIRMENT [None]
  - MOOD SWINGS [None]
  - OROPHARYNGEAL PAIN [None]
  - PSYCHOMOTOR HYPERACTIVITY [None]
  - URINARY INCONTINENCE [None]
